FAERS Safety Report 9040602 (Version 1)
Quarter: 2013Q1

REPORT INFORMATION
  Report Type: Report from Study
  Country: US (occurrence: US)
  Receive Date: 20130129
  Receipt Date: 20130129
  Transmission Date: 20140127
  Serious: No
  Sender: FDA-Public Use
  Company Number: US-ABBOTT-12P-163-0889491-00

PATIENT
  Age: 38 Year
  Sex: Female
  Weight: 97.61 kg

DRUGS (6)
  1. HUMIRA 40 MG/0.8 ML PEN [Suspect]
     Indication: RHEUMATOID ARTHRITIS
     Dates: start: 201110
  2. FENTANYL [Concomitant]
     Indication: PAIN
     Dosage: PATCH
  3. INDOCIN [Concomitant]
     Indication: PAIN
  4. LUNESTA [Concomitant]
     Indication: INSOMNIA
  5. CARISOPRODOL [Concomitant]
     Indication: MUSCLE SPASMS
  6. CARISOPRODOL [Concomitant]
     Indication: HYPOAESTHESIA

REACTIONS (8)
  - Oropharyngeal pain [Recovered/Resolved]
  - Abdominal pain upper [Recovering/Resolving]
  - Back pain [Recovering/Resolving]
  - Dysuria [Recovering/Resolving]
  - Tonsillar hypertrophy [Unknown]
  - Urinary tract infection [Unknown]
  - Local swelling [Recovered/Resolved]
  - Pain in extremity [Recovered/Resolved]
